FAERS Safety Report 25551858 (Version 2)
Quarter: 2025Q3

REPORT INFORMATION
  Report Type: Spontaneous
  Country: GB (occurrence: GB)
  Receive Date: 20250714
  Receipt Date: 20250910
  Transmission Date: 20251021
  Serious: Yes (Hospitalization)
  Sender: SANDOZ
  Company Number: GB-SANDOZ-SDZ2025GB049404

PATIENT
  Age: 57 Year
  Sex: Male

DRUGS (2)
  1. TACROLIMUS [Suspect]
     Active Substance: TACROLIMUS
     Indication: Product used for unknown indication
     Dosage: 3 MG, BID, CAP 50
     Route: 048
  2. MYCOPHENOLATE SODIUM [Suspect]
     Active Substance: MYCOPHENOLATE SODIUM
     Indication: Product used for unknown indication
     Route: 065

REACTIONS (2)
  - Cardiac disorder [Not Recovered/Not Resolved]
  - Chest pain [Not Recovered/Not Resolved]

NARRATIVE: CASE EVENT DATE: 20250601
